FAERS Safety Report 4660389-5 (Version None)
Quarter: 2005Q2

REPORT INFORMATION
  Report Type: 
  Country: None (occurrence: None)
  Receive Date: 20050427
  Receipt Date: 20050328
  Transmission Date: 20051028
  Serious: No
  Sender: FDA-Public Use
  Company Number: 213429

PATIENT
  Sex: Female

DRUGS (1)
  1. XOLAIR [Suspect]
     Dosage: UNK, 1/MONTH, UNK
     Route: 065

REACTIONS (1)
  - DRUG INEFFECTIVE [None]
